FAERS Safety Report 14780304 (Version 3)
Quarter: 2018Q2

REPORT INFORMATION
  Report Type: Spontaneous
  Country: AT (occurrence: AT)
  Receive Date: 20180419
  Receipt Date: 20180524
  Transmission Date: 20180711
  Serious: Yes (Other)
  Sender: FDA-Public Use
  Company Number: AT-TERSERA THERAPEUTICS, LLC-2046077

PATIENT
  Age: 45 Year
  Sex: Female

DRUGS (5)
  1. IBRANCE [Suspect]
     Active Substance: PALBOCICLIB
     Route: 065
     Dates: start: 201704
  2. LETROZOLE. [Suspect]
     Active Substance: LETROZOLE
     Dates: start: 201704
  3. DENOSUMAB [Suspect]
     Active Substance: DENOSUMAB
     Dates: start: 201704
  4. PALBOCICLIB [Concomitant]
     Active Substance: PALBOCICLIB
  5. ZOLADEX [Suspect]
     Active Substance: GOSERELIN ACETATE
     Indication: BREAST CANCER METASTATIC
     Route: 058
     Dates: start: 201704

REACTIONS (7)
  - Blood alkaline phosphatase increased [Recovering/Resolving]
  - Aspartate aminotransferase increased [Recovering/Resolving]
  - Alopecia [Unknown]
  - Alanine aminotransferase increased [Recovering/Resolving]
  - Fatigue [Unknown]
  - Gamma-glutamyltransferase increased [Recovering/Resolving]
  - Neutropenia [Unknown]
